FAERS Safety Report 4602619-1 (Version None)
Quarter: 2005Q1

REPORT INFORMATION
  Report Type: 
  Country: None (occurrence: None)
  Receive Date: 20050307
  Receipt Date: 20050221
  Transmission Date: 20050727
  Serious: Yes (Hospitalization)
  Sender: FDA-Public Use
  Company Number: 2005BI004132

PATIENT
  Sex: Female

DRUGS (1)
  1. AVONEX [Suspect]
     Dosage: IM
     Dates: start: 20050218

REACTIONS (3)
  - HYPERCOAGULATION [None]
  - MYOCARDIAL INFARCTION [None]
  - STENT OCCLUSION [None]
